FAERS Safety Report 19018794 (Version 1)
Quarter: 2021Q1

REPORT INFORMATION
  Report Type: Spontaneous
  Country: CH (occurrence: CH)
  Receive Date: 20210317
  Receipt Date: 20210317
  Transmission Date: 20210420
  Serious: Yes (Hospitalization)
  Sender: FDA-Public Use
  Company Number: CH-ALNYLAM PHARMACEUTICALS, INC.-ALN-2021-000624

PATIENT

DRUGS (1)
  1. ONPATTRO [Suspect]
     Active Substance: PATISIRAN SODIUM
     Indication: HEREDITARY NEUROPATHIC AMYLOIDOSIS
     Dosage: UNK
     Route: 042
     Dates: start: 20190902

REACTIONS (4)
  - Intentional dose omission [Unknown]
  - Cardiac operation [Unknown]
  - Intentional dose omission [Unknown]
  - Insurance issue [Unknown]

NARRATIVE: CASE EVENT DATE: 20210118
